FAERS Safety Report 9162569 (Version 1)
Quarter: 2013Q1

REPORT INFORMATION
  Report Type: Spontaneous
  Country: US (occurrence: US)
  Receive Date: 20130314
  Receipt Date: 20130314
  Transmission Date: 20140127
  Serious: Yes (Congenital Anomaly, Other)
  Sender: FDA-Public Use
  Company Number: US-MYLANLABS-2013S1004989

PATIENT
  Sex: Female

DRUGS (2)
  1. METHOTREXATE [Suspect]
     Indication: ABORTION INDUCED
     Dosage: ONE DOSE
     Route: 064
  2. MISOPROSTOL [Suspect]
     Indication: ABORTION INDUCED
     Route: 064

REACTIONS (3)
  - Multiple congenital abnormalities [Not Recovered/Not Resolved]
  - Congenital musculoskeletal anomaly [Not Recovered/Not Resolved]
  - Exposure during pregnancy [Unknown]
